FAERS Safety Report 15059224 (Version 1)
Quarter: 2018Q2

REPORT INFORMATION
  Report Type: Spontaneous
  Country: US (occurrence: US)
  Receive Date: 20180625
  Receipt Date: 20180625
  Transmission Date: 20180711
  Serious: Yes (Other)
  Sender: FDA-Public Use
  Company Number: US-COOPERSURGICAL, INC.-US-2018CPS032248

PATIENT

DRUGS (1)
  1. PARAGARD T 380A [Suspect]
     Active Substance: COPPER
     Indication: CONTRACEPTION
     Dosage: UNK
     Route: 015
     Dates: start: 201510, end: 20180611

REACTIONS (5)
  - Drug ineffective [Unknown]
  - Vaginal haemorrhage [Recovered/Resolved]
  - Pregnancy with contraceptive device [Not Recovered/Not Resolved]
  - Breast tenderness [Unknown]
  - Premature separation of placenta [Unknown]

NARRATIVE: CASE EVENT DATE: 201804
